FAERS Safety Report 18395117 (Version 1)
Quarter: 2020Q4

REPORT INFORMATION
  Report Type: Other
  Country: ZA (occurrence: ZA)
  Receive Date: 20201016
  Receipt Date: 20201016
  Transmission Date: 20210114
  Serious: Yes (Death)
  Sender: FDA-Public Use
  Company Number: ZA-B.BRAUN MEDICAL INC.-2092878

PATIENT
  Age: 18 Year
  Sex: Female

DRUGS (2)
  1. RINGER^S LACTATE INFUSION [Concomitant]
     Route: 040
  2. DEXTROSE INJECTIONS USP 0264-7510-00 0264-7510-20 [Suspect]
     Active Substance: DEXTROSE
     Route: 042

REACTIONS (1)
  - Hyponatraemia [None]
